FAERS Safety Report 4370930-8 (Version None)
Quarter: 2004Q2

REPORT INFORMATION
  Report Type: 
  Country: None (occurrence: None)
  Receive Date: 20040526
  Receipt Date: 20040513
  Transmission Date: 20050107
  Serious: Yes (Other)
  Sender: FDA-Public Use
  Company Number: B0333180A

PATIENT
  Age: 39 Year
  Sex: Male

DRUGS (2)
  1. NICOTINE [Suspect]
     Indication: EX-SMOKER
     Dosage: 21 MG PER DAY TRANSDERMAL
     Route: 062
  2. NICOTINE [Suspect]
     Indication: EX-SMOKER
     Dosage: 14 MG PER DAY TRANSDERMAL
     Route: 062

REACTIONS (3)
  - BACTERIAL INFECTION [None]
  - BLOOD POTASSIUM DECREASED [None]
  - INAPPROPRIATE ANTIDIURETIC HORMONE SECRETION [None]
